FAERS Safety Report 10963419 (Version 1)
Quarter: 2015Q1

REPORT INFORMATION
  Report Type: Spontaneous
  Country: US (occurrence: None)
  Receive Date: 20150226
  Receipt Date: 20150226
  Transmission Date: 20150721
  Serious: No
  Sender: FDA-Public Use
  Company Number: TPA2009A03446

PATIENT
  Age: 71 Year
  Sex: Male

DRUGS (6)
  1. COLCHICINE. [Concomitant]
     Active Substance: COLCHICINE
  2. ULORIC [Suspect]
     Active Substance: FEBUXOSTAT
     Indication: BLOOD URIC ACID INCREASED
     Route: 048
     Dates: start: 20090911, end: 20091011
  3. DILTIAZEM [Concomitant]
     Active Substance: DILTIAZEM
  4. UNSPECIFIED MULTIVATIMINS (ERGOCALCIFEROL, ASCORBIC ACID, FOLIC ACID, THIAMIDE HYDROCHLORIDE, RETINOL, RIBOFLAVIN, NICOTINAMIDE, PANTHENOL) [Concomitant]
  5. ULORIC [Suspect]
     Active Substance: FEBUXOSTAT
     Indication: GOUT
     Route: 048
     Dates: start: 20090911, end: 20091011
  6. UNSPECIFIED BLOOD PRESSURE MEDICATIONS (ALL THERAPEUTIC PRODUCTS) [Concomitant]

REACTIONS (4)
  - Gout [None]
  - Pollakiuria [None]
  - Rash [None]
  - Drug ineffective [None]

NARRATIVE: CASE EVENT DATE: 200909
